FAERS Safety Report 5780043-6 (Version None)
Quarter: 2008Q2

REPORT INFORMATION
  Report Type: 
  Country: None (occurrence: None)
  Receive Date: 20080620
  Receipt Date: 20080610
  Transmission Date: 20081010
  Serious: Yes (Death, Hospitalization)
  Sender: FDA-Public Use
  Company Number: US-ROCHE-567116

PATIENT
  Sex: Male
  Weight: 103.4 kg

DRUGS (2)
  1. CAPECITABINE [Suspect]
     Route: 048
     Dates: start: 20080219, end: 20080505
  2. HYDROCODONE [Concomitant]
     Indication: PAIN

REACTIONS (3)
  - DISEASE PROGRESSION [None]
  - DRUG INEFFECTIVE [None]
  - METASTASES TO LUNG [None]
